FAERS Safety Report 5472895-4 (Version None)
Quarter: 2007Q4

REPORT INFORMATION
  Report Type: 
  Country: None (occurrence: None)
  Receive Date: 20071001
  Receipt Date: 20070928
  Transmission Date: 20080405
  Serious: Yes (Life-Threatening)
  Sender: FDA-Public Use
  Company Number: B0439364A

PATIENT
  Age: 22 Year
  Sex: Female
  Weight: 54 kg

DRUGS (16)
  1. CLAMOXYL IV [Suspect]
     Dosage: 1G THREE TIMES PER DAY
     Route: 042
     Dates: start: 20060906, end: 20060913
  2. FENTANYL [Suspect]
     Dosage: 200MG PER DAY
     Route: 042
     Dates: start: 20060827, end: 20060911
  3. TIOPENTAL [Suspect]
     Route: 042
     Dates: start: 20060827, end: 20060911
  4. PERFALGAN [Suspect]
     Dosage: 4G PER DAY
     Route: 042
     Dates: start: 20060831
  5. AUGMENTIN '125' [Concomitant]
     Dosage: 3G PER DAY
     Route: 042
     Dates: start: 20060905, end: 20060906
  6. INEXIUM [Concomitant]
     Dosage: 20MG PER DAY
     Route: 042
     Dates: start: 20060901, end: 20060902
  7. HYPNOVEL [Concomitant]
     Route: 042
     Dates: start: 20060827, end: 20060831
  8. NORADRENALINE [Concomitant]
     Route: 042
     Dates: start: 20060827, end: 20060911
  9. ACTRAPID [Concomitant]
     Route: 042
     Dates: start: 20060827, end: 20060911
  10. FORLAX [Concomitant]
     Route: 050
     Dates: start: 20060902, end: 20060906
  11. NORMACOL [Concomitant]
     Route: 065
     Dates: start: 20060902, end: 20060903
  12. ERYTHROMYCIN [Concomitant]
     Route: 042
     Dates: start: 20060904, end: 20060906
  13. MINIRIN [Concomitant]
     Route: 042
     Dates: start: 20060906, end: 20060909
  14. POTASSIUM CHLORIDE [Concomitant]
     Route: 048
     Dates: start: 20060908, end: 20060912
  15. LOVENOX [Concomitant]
     Dosage: .2ML PER DAY
     Route: 058
     Dates: start: 20060912
  16. MINIDRIL [Concomitant]
     Route: 065

REACTIONS (2)
  - AGRANULOCYTOSIS [None]
  - BONE MARROW FAILURE [None]
